FAERS Safety Report 17544872 (Version 1)
Quarter: 2020Q1

REPORT INFORMATION
  Report Type: Spontaneous
  Country: US (occurrence: US)
  Receive Date: 20200306
  Receipt Date: 20200306
  Transmission Date: 20200409
  Serious: Yes (Hospitalization)
  Sender: FDA-Public Use
  Company Number: None

PATIENT
  Sex: Female
  Weight: 64 kg

DRUGS (2)
  1. DOXIL [Suspect]
     Active Substance: DOXORUBICIN HYDROCHLORIDE
     Dates: end: 20200115
  2. BEVACIZUMAB. [Suspect]
     Active Substance: BEVACIZUMAB
     Dates: end: 20190924

REACTIONS (12)
  - Dyspnoea [None]
  - Oedema peripheral [None]
  - Ascites [None]
  - Cardiac failure congestive [None]
  - Anaemia [None]
  - Pleural effusion [None]
  - Brain natriuretic peptide increased [None]
  - Pulmonary oedema [None]
  - Pneumonia [None]
  - Loss of personal independence in daily activities [None]
  - Fluid overload [None]
  - Diastolic dysfunction [None]

NARRATIVE: CASE EVENT DATE: 20200224
